FAERS Safety Report 24430984 (Version 3)
Quarter: 2025Q3

REPORT INFORMATION
  Report Type: Spontaneous
  Country: CN (occurrence: CN)
  Receive Date: 20241014
  Receipt Date: 20250809
  Transmission Date: 20251021
  Serious: Yes (Other)
  Sender: ALEXION PHARMACEUTICALS
  Company Number: CN-ASTRAZENECA-202409CHN011966CN

PATIENT
  Age: 42 Year
  Sex: Female
  Weight: 84 kg

DRUGS (1)
  1. PULMICORT RESPULES [Suspect]
     Active Substance: BUDESONIDE
     Indication: Pneumonia
     Dosage: 4 MILLILITER, BID
     Dates: start: 20240910, end: 20240914

REACTIONS (2)
  - Foreign body in throat [Recovered/Resolved]
  - Pallor [Recovered/Resolved]

NARRATIVE: CASE EVENT DATE: 20240914
